FAERS Safety Report 17064938 (Version 5)
Quarter: 2020Q1

REPORT INFORMATION
  Report Type: Report from Study
  Country: GR (occurrence: GR)
  Receive Date: 20191122
  Receipt Date: 20200312
  Transmission Date: 20200409
  Serious: Yes (Hospitalization)
  Sender: FDA-Public Use
  Company Number: GR-ROCHE-2479878

PATIENT
  Age: 47 Year
  Sex: Female
  Weight: 98 kg

DRUGS (4)
  1. PLACEBO [Suspect]
     Active Substance: UNSPECIFIED INGREDIENT
     Indication: METASTATIC MALIGNANT MELANOMA
     Dosage: ON 08/NOV/2019, SHE RECEIVED MOST RECENT DOSE OF PLACEBO VIAL 20 ML PRIOR TO SAE.
     Route: 042
     Dates: start: 20170721
  2. COBIMETINIB. [Suspect]
     Active Substance: COBIMETINIB
     Indication: METASTATIC MALIGNANT MELANOMA
     Dosage: ON 14/NOV/2019, SHE RECEIVED MOST RECENT DOSE 60 MG PRIOR TO SAE.
     Route: 048
     Dates: start: 20170624
  3. VEMURAFENIB. [Suspect]
     Active Substance: VEMURAFENIB
     Indication: METASTATIC MALIGNANT MELANOMA
     Dosage: TOTAL NUMBER OF TABLETS OF LAST VEMURAFENIB ADMINISTERED PRIOR TO SAE ONSET: 96?ON 16/NOV/2019, SHE
     Route: 048
     Dates: start: 20170624
  4. BELIFAX [Concomitant]
     Indication: PROPHYLAXIS
     Route: 065
     Dates: start: 201612

REACTIONS (1)
  - Appendicitis [Recovered/Resolved]

NARRATIVE: CASE EVENT DATE: 20191117
